FAERS Safety Report 10273686 (Version 2)
Quarter: 2014Q3

REPORT INFORMATION
  Report Type: Spontaneous
  Country: IT (occurrence: None)
  Receive Date: 20140630
  Receipt Date: 20140702
  Transmission Date: 20150326
  Serious: Yes (Hospitalization)
  Sender: FDA-Public Use
  Company Number: AUR-APL-2014-06834

PATIENT
  Age: 85 Year
  Sex: Female

DRUGS (2)
  1. LASIX [Suspect]
     Active Substance: FUROSEMIDE
     Indication: HYPERTENSION
     Dosage: 3 DF, TOTAL, ORAL
     Route: 048
     Dates: start: 20140616, end: 20140616
  2. BISOPROLOL [Suspect]
     Active Substance: BISOPROLOL
     Indication: HYPERTENSION
     Dosage: 3.75 MG, TOTAL, ORAL
     Route: 048
     Dates: start: 20140616, end: 20140616

REACTIONS (3)
  - Hypotension [None]
  - Intentional product misuse [None]
  - Drug administration error [None]

NARRATIVE: CASE EVENT DATE: 20140616
